FAERS Safety Report 12909133 (Version 1)
Quarter: 2016Q4

REPORT INFORMATION
  Report Type: Spontaneous
  Country: US (occurrence: US)
  Receive Date: 20161103
  Receipt Date: 20161103
  Transmission Date: 20170207
  Serious: No
  Sender: FDA-Public Use
  Company Number: US-JAZZ-2016-US-017109

PATIENT
  Sex: Male

DRUGS (24)
  1. XYREM [Suspect]
     Active Substance: SODIUM OXYBATE
     Indication: NARCOLEPSY
     Dosage: 2.25 G, BID
     Route: 048
     Dates: start: 200610, end: 200610
  2. ASPIRIN. [Concomitant]
     Active Substance: ASPIRIN
  3. PIOGLITAZONE. [Concomitant]
     Active Substance: PIOGLITAZONE
  4. REQUIP [Concomitant]
     Active Substance: ROPINIROLE HYDROCHLORIDE
  5. XYREM [Suspect]
     Active Substance: SODIUM OXYBATE
     Dosage: 3 G, BID
     Route: 048
     Dates: start: 201210, end: 201210
  6. LISINOPRIL. [Concomitant]
     Active Substance: LISINOPRIL
  7. METHOCARBAMOL. [Concomitant]
     Active Substance: METHOCARBAMOL
  8. SERTRALINE [Concomitant]
     Active Substance: SERTRALINE HYDROCHLORIDE
  9. METFORMIN [Concomitant]
     Active Substance: METFORMIN HYDROCHLORIDE
  10. XYREM [Suspect]
     Active Substance: SODIUM OXYBATE
     Dosage: 4.5 G, BID
     Route: 048
     Dates: start: 201210
  11. MVI [Concomitant]
     Active Substance: VITAMINS
  12. NORVASC [Concomitant]
     Active Substance: AMLODIPINE BESYLATE
  13. METHYLPHENIDATE. [Concomitant]
     Active Substance: METHYLPHENIDATE
  14. AMLODIPINE BESYLATE. [Concomitant]
     Active Substance: AMLODIPINE BESYLATE
  15. INVOKANA [Concomitant]
     Active Substance: CANAGLIFLOZIN
  16. AVANDIA [Concomitant]
     Active Substance: ROSIGLITAZONE MALEATE
  17. HCTZ [Concomitant]
     Active Substance: HYDROCHLOROTHIAZIDE
  18. XYREM [Suspect]
     Active Substance: SODIUM OXYBATE
     Dosage: 4.5 G, BID
     Route: 048
     Dates: start: 200705, end: 2010
  19. XYREM [Suspect]
     Active Substance: SODIUM OXYBATE
     Dosage: 2.25 G, BID
     Route: 048
     Dates: start: 201210, end: 201210
  20. PROVIGIL [Concomitant]
     Active Substance: MODAFINIL
  21. XYREM [Suspect]
     Active Substance: SODIUM OXYBATE
     Dosage: DOSE ADJUSTMENTS
     Route: 048
     Dates: start: 200610, end: 200705
  22. LISINOPRIL AND HYDROCHLOROTHIAZIDE [Concomitant]
     Active Substance: HYDROCHLOROTHIAZIDE\LISINOPRIL
  23. ATORVASTATIN [Concomitant]
     Active Substance: ATORVASTATIN
  24. TRICOR [Concomitant]
     Active Substance: FENOFIBRATE

REACTIONS (3)
  - Wrong technique in product usage process [Unknown]
  - Unevaluable event [Unknown]
  - Somnolence [Not Recovered/Not Resolved]
